FAERS Safety Report 7486345-X (Version None)
Quarter: 2011Q2

REPORT INFORMATION
  Report Type: 
  Country: None (occurrence: None)
  Receive Date: 20110517
  Receipt Date: 20110512
  Transmission Date: 20111010
  Serious: Yes (Other)
  Sender: FDA-Public Use
  Company Number: GB-ABBOTT-11P-167-0725761-00

PATIENT
  Sex: Male

DRUGS (1)
  1. HUMIRA [Suspect]
     Indication: RHEUMATOID ARTHRITIS
     Dates: start: 20100101, end: 20110101

REACTIONS (6)
  - FLUSHING [None]
  - BURNING SENSATION [None]
  - PALPITATIONS [None]
  - DYSPNOEA [None]
  - TINNITUS [None]
  - VISION BLURRED [None]
